FAERS Safety Report 15340614 (Version 5)
Quarter: 2018Q4

REPORT INFORMATION
  Report Type: Spontaneous
  Country: CA (occurrence: CA)
  Receive Date: 20180831
  Receipt Date: 20181018
  Transmission Date: 20190204
  Serious: Yes (Other)
  Sender: FDA-Public Use
  Company Number: CA-PFIZER INC-2017470973

PATIENT
  Age: 55 Year
  Sex: Female

DRUGS (4)
  1. XELJANZ [Suspect]
     Active Substance: TOFACITINIB CITRATE
     Indication: RHEUMATOID ARTHRITIS
     Dosage: 5 MG, 2X/DAY
     Route: 048
     Dates: start: 20171025, end: 20180815
  2. METHOTREXATE SODIUM. [Concomitant]
     Active Substance: METHOTREXATE SODIUM
     Indication: RHEUMATOID ARTHRITIS
     Dosage: 20 MG, WEEKLY
     Route: 058
     Dates: start: 20160619
  3. ADVIL [Concomitant]
     Active Substance: IBUPROFEN
     Dosage: AS NEEDED
  4. XELJANZ [Suspect]
     Active Substance: TOFACITINIB CITRATE
     Dosage: 5 MG, 2X/DAY
     Route: 048
     Dates: start: 2018

REACTIONS (6)
  - Drug effect incomplete [Not Recovered/Not Resolved]
  - Urinary tract infection [Recovered/Resolved]
  - Uterine mass [Unknown]
  - Fatigue [Recovering/Resolving]
  - Feeling cold [Not Recovered/Not Resolved]
  - Nephrolithiasis [Unknown]

NARRATIVE: CASE EVENT DATE: 2017
